FAERS Safety Report 9775259 (Version 2)
Quarter: 2013Q4

REPORT INFORMATION
  Report Type: Spontaneous
  Country: US (occurrence: US)
  Receive Date: 20131220
  Receipt Date: 20131220
  Transmission Date: 20140711
  Serious: No
  Sender: FDA-Public Use
  Company Number: US-GALDERMA-US13003111

PATIENT
  Age: 25 Year
  Sex: Male

DRUGS (5)
  1. MIRVASO (BRIMONIDINE) TOPICAL GEL, 0.33% [Suspect]
     Indication: ERYTHEMA
     Dosage: 0.33%
     Route: 061
     Dates: start: 20131004, end: 20131004
  2. DIFFERIN (ADAPALENE) GEL, 0.3% [Concomitant]
     Indication: ACNE
     Route: 061
     Dates: start: 201307
  3. DUAC (CLINDAMYCIN PHOSPHATE AND BENZOYL PEROXIDE) GEL, 1.2%/5% [Concomitant]
     Indication: ACNE
     Route: 061
     Dates: start: 2011
  4. CLEAN AND CLEAR 5% BENZOYL PEROXIDE SCRUB [Concomitant]
     Indication: THERAPEUTIC SKIN CARE TOPICAL
     Route: 061
  5. CERAVE MOISTURIZING LOTION [Concomitant]
     Indication: DRY SKIN PROPHYLAXIS
     Route: 061

REACTIONS (2)
  - Pallor [Recovered/Resolved]
  - Off label use [Recovered/Resolved]
